FAERS Safety Report 4472780-0 (Version None)
Quarter: 2004Q4

REPORT INFORMATION
  Report Type: 
  Country: None (occurrence: None)
  Receive Date: 20041012
  Receipt Date: 20041012
  Transmission Date: 20050328
  Serious: Yes (Disabling)
  Sender: FDA-Public Use
  Company Number: None

PATIENT
  Sex: Male
  Weight: 95.2554 kg

DRUGS (1)
  1. EFFEXOR XR [Suspect]
     Indication: DEPRESSION
     Dosage: 75 MG TWICE A DAY ORAL
     Route: 048
     Dates: start: 20020223, end: 20040215

REACTIONS (16)
  - ANGER [None]
  - BLOOD PRESSURE INCREASED [None]
  - CRYING [None]
  - DRUG WITHDRAWAL SYNDROME [None]
  - DYSPEPSIA [None]
  - HALLUCINATION, AUDITORY [None]
  - IMPAIRED DRIVING ABILITY [None]
  - MANIA [None]
  - MEMORY IMPAIRMENT [None]
  - MENTAL IMPAIRMENT [None]
  - PAIN [None]
  - PARAESTHESIA [None]
  - PARANOIA [None]
  - PHOTOPSIA [None]
  - TINNITUS [None]
  - WEIGHT INCREASED [None]
